FAERS Safety Report 7266639-3 (Version None)
Quarter: 2011Q1

REPORT INFORMATION
  Report Type: 
  Country: None (occurrence: None)
  Receive Date: 20110131
  Receipt Date: 20110118
  Transmission Date: 20110831
  Serious: Yes (Other)
  Sender: FDA-Public Use
  Company Number: NL-MYLANLABS-2011S1001304

PATIENT
  Age: 80 Year
  Sex: Female

DRUGS (7)
  1. AMLODIPINE [Concomitant]
     Route: 065
  2. METFORMIN [Concomitant]
     Route: 065
  3. FUROSEMIDE [Concomitant]
     Route: 065
  4. METOPROLOL TARTRATE [Concomitant]
     Route: 065
  5. OMEPRAZOLE [Suspect]
     Indication: GASTROOESOPHAGEAL REFLUX DISEASE
     Route: 065
  6. ATORVASTATIN [Concomitant]
     Route: 065
  7. CARBASALATE CALCIUM [Concomitant]
     Route: 065

REACTIONS (4)
  - BLOOD PARATHYROID HORMONE DECREASED [None]
  - HYPOKALAEMIA [None]
  - HYPOCALCAEMIA [None]
  - HYPOMAGNESAEMIA [None]
